FAERS Safety Report 5083667-7 (Version None)
Quarter: 2006Q3

REPORT INFORMATION
  Report Type: 
  Country: None (occurrence: None)
  Receive Date: 20060818
  Receipt Date: 20060516
  Transmission Date: 20061208
  Serious: Yes (Other)
  Sender: FDA-Public Use
  Company Number: US-SANOFI-SYNTHELABO-A03200603230

PATIENT
  Sex: Female
  Weight: 60.8 kg

DRUGS (5)
  1. AMBIEN [Suspect]
     Indication: INSOMNIA
     Route: 048
     Dates: start: 20060127, end: 20060401
  2. ACIPHEX [Concomitant]
     Dosage: UNK
     Route: 048
  3. SOMA [Concomitant]
     Dosage: UNK
     Route: 048
  4. HYDROCODONE BITARTRATE [Concomitant]
     Dosage: UNK
     Route: 048
  5. VALIUM [Concomitant]
     Dosage: UNK
     Route: 048

REACTIONS (13)
  - ABDOMINAL PAIN [None]
  - CARDIAC DISORDER [None]
  - CHEST PAIN [None]
  - CONFUSIONAL STATE [None]
  - DELUSION [None]
  - DISORIENTATION [None]
  - DISTURBANCE IN ATTENTION [None]
  - DRUG INEFFECTIVE [None]
  - HEART RATE INCREASED [None]
  - HYPOAESTHESIA [None]
  - MEMORY IMPAIRMENT [None]
  - NIGHTMARE [None]
  - PARAESTHESIA [None]
